FAERS Safety Report 19196055 (Version 1)
Quarter: 2021Q2

REPORT INFORMATION
  Report Type: Spontaneous
  Country: US (occurrence: US)
  Receive Date: 20210429
  Receipt Date: 20210429
  Transmission Date: 20210717
  Serious: Yes (Hospitalization)
  Sender: FDA-Public Use
  Company Number: US-GALDERMA-US2021009459

PATIENT
  Age: 56 Year
  Sex: Female

DRUGS (2)
  1. ORAL CONTRACEPTIVE PILLS [Concomitant]
     Active Substance: UNSPECIFIED INGREDIENT
     Indication: PRODUCT USED FOR UNKNOWN INDICATION
     Route: 048
  2. DOXYCYCLINE. [Suspect]
     Active Substance: DOXYCYCLINE
     Indication: LYME DISEASE
     Route: 065
     Dates: start: 201505, end: 201505

REACTIONS (13)
  - Myalgia [Recovered/Resolved]
  - Nausea [Recovered/Resolved]
  - Intentional product use issue [Recovered/Resolved]
  - Muscular weakness [Recovered/Resolved]
  - Rash erythematous [Recovered/Resolved]
  - Abnormal loss of weight [Recovered/Resolved]
  - Arthralgia [Recovered/Resolved]
  - Fatigue [Recovered/Resolved]
  - Conjunctivitis [Recovered/Resolved]
  - Decreased appetite [Recovered/Resolved]
  - Microcytic anaemia [Recovered/Resolved]
  - Rash [Recovered/Resolved]
  - Anti-neutrophil cytoplasmic antibody positive vasculitis [Recovered/Resolved]

NARRATIVE: CASE EVENT DATE: 2015
